FAERS Safety Report 12991274 (Version 1)
Quarter: 2016Q4

REPORT INFORMATION
  Report Type: Spontaneous
  Country: JP (occurrence: JP)
  Receive Date: 20161201
  Receipt Date: 20161201
  Transmission Date: 20170207
  Serious: Yes (Life-Threatening)
  Sender: FDA-Public Use
  Company Number: JP-SA-2016SA218976

PATIENT
  Age: 77 Year
  Sex: Male

DRUGS (3)
  1. 5-FU [Suspect]
     Active Substance: FLUOROURACIL
     Indication: LIP AND/OR ORAL CAVITY CANCER
     Dosage: 50-100 MG/M2/DAY
     Route: 014
  2. DOCETAXEL. [Suspect]
     Active Substance: DOCETAXEL
     Indication: LIP AND/OR ORAL CAVITY CANCER
     Route: 014
  3. NEDAPLATIN [Suspect]
     Active Substance: NEDAPLATIN
     Indication: LIP AND/OR ORAL CAVITY CANCER
     Route: 014

REACTIONS (5)
  - Pneumonia aspiration [Recovering/Resolving]
  - White blood cell count decreased [Recovered/Resolved]
  - Pyrexia [Unknown]
  - Acute respiratory distress syndrome [Recovering/Resolving]
  - Bone marrow failure [Recovered/Resolved]
